FAERS Safety Report 13918894 (Version 5)
Quarter: 2018Q2

REPORT INFORMATION
  Report Type: Spontaneous
  Country: JP (occurrence: JP)
  Receive Date: 20170830
  Receipt Date: 20180604
  Transmission Date: 20180711
  Serious: Yes (Hospitalization)
  Sender: FDA-Public Use
  Company Number: JP-AMGEN-JPNSP2017131436

PATIENT
  Age: 8 Decade

DRUGS (51)
  1. GRAN [Suspect]
     Active Substance: FILGRASTIM
     Dosage: 75 MUG, UNK
     Route: 058
     Dates: start: 20160906, end: 20170202
  2. ENDOXAN                            /00021102/ [Concomitant]
     Active Substance: CYCLOPHOSPHAMIDE
     Dosage: 750 MG, UNK
     Route: 041
     Dates: start: 20160218, end: 20160218
  3. ONCOVIN [Concomitant]
     Active Substance: VINCRISTINE SULFATE
     Dosage: 1.4 MG, UNK
     Route: 041
     Dates: start: 20151120, end: 20151120
  4. RITUXAN [Concomitant]
     Active Substance: RITUXIMAB
     Dosage: 600 MG, UNK
     Route: 041
     Dates: start: 20160218, end: 20160218
  5. PREDONINE                          /00016203/ [Concomitant]
     Active Substance: PREDNISOLONE SODIUM SUCCINATE
     Dosage: 60 MG, UNK
     Route: 048
     Dates: start: 20151210, end: 20151210
  6. CEFAZOLIN NA [Concomitant]
     Active Substance: CEFAZOLIN SODIUM
     Dosage: 1 G, TID
     Route: 041
     Dates: start: 20170608, end: 20170609
  7. SEISHOKU [Concomitant]
     Active Substance: SODIUM CHLORIDE
     Dosage: 100 ML, BID
     Route: 041
     Dates: start: 20170607, end: 20170607
  8. ENDOXAN                            /00021102/ [Concomitant]
     Active Substance: CYCLOPHOSPHAMIDE
     Dosage: 750 MG, UNK
     Route: 041
     Dates: start: 20151120, end: 20151120
  9. ONCOVIN [Concomitant]
     Active Substance: VINCRISTINE SULFATE
     Dosage: 1.4 MG, UNK
     Route: 041
     Dates: start: 20151008, end: 20151008
  10. ONCOVIN [Concomitant]
     Active Substance: VINCRISTINE SULFATE
     Dosage: 1.4 MG, UNK
     Route: 041
     Dates: start: 20160218, end: 20160218
  11. PREDONINE                          /00016203/ [Concomitant]
     Active Substance: PREDNISOLONE SODIUM SUCCINATE
     Dosage: 60 MG, UNK
     Route: 048
     Dates: start: 20151120, end: 20151120
  12. PREDONINE                          /00016203/ [Concomitant]
     Active Substance: PREDNISOLONE SODIUM SUCCINATE
     Dosage: 60 MG, UNK
     Route: 048
     Dates: start: 20160107, end: 20160107
  13. PREDONINE                          /00016203/ [Concomitant]
     Active Substance: PREDNISOLONE SODIUM SUCCINATE
     Dosage: 60 MG, UNK
     Route: 048
     Dates: start: 20160128, end: 20160128
  14. GRAN [Suspect]
     Active Substance: FILGRASTIM
     Dosage: 75 MUG, UNK
     Route: 058
     Dates: start: 20151202, end: 20151202
  15. RITUXAN [Concomitant]
     Active Substance: RITUXIMAB
     Dosage: 600 MG, UNK
     Route: 041
     Dates: start: 20160128, end: 20160128
  16. ENDOXAN                            /00021102/ [Concomitant]
     Active Substance: CYCLOPHOSPHAMIDE
     Dosage: 750 MG, UNK
     Route: 041
     Dates: start: 20160128, end: 20160128
  17. DOXORUBICIN HYDROCHLORIDE. [Concomitant]
     Active Substance: DOXORUBICIN HYDROCHLORIDE
     Dosage: 25 MG, UNK
     Route: 041
     Dates: start: 20160107, end: 20160107
  18. DOXORUBICIN HYDROCHLORIDE. [Concomitant]
     Active Substance: DOXORUBICIN HYDROCHLORIDE
     Dosage: 25 MG, UNK
     Route: 041
     Dates: start: 20160128, end: 20160128
  19. DOXORUBICIN HYDROCHLORIDE. [Concomitant]
     Active Substance: DOXORUBICIN HYDROCHLORIDE
     Dosage: 50 MG, UNK
     Route: 041
     Dates: start: 20160218, end: 20160218
  20. GRAN [Suspect]
     Active Substance: FILGRASTIM
     Indication: NEUTROPENIA
     Dosage: 75 MUG, UNK
     Route: 058
     Dates: start: 20151106, end: 20151107
  21. GRAN [Suspect]
     Active Substance: FILGRASTIM
     Dosage: 75 MUG, UNK
     Route: 058
     Dates: start: 20151109, end: 20151111
  22. GRAN [Suspect]
     Active Substance: FILGRASTIM
     Dosage: 75 MUG, UNK
     Route: 058
     Dates: start: 20151119, end: 20151119
  23. G-LASTA [Suspect]
     Active Substance: PEGFILGRASTIM
     Dosage: 3.6 MG, UNK
     Route: 058
     Dates: start: 20160202, end: 20160202
  24. RITUXAN [Concomitant]
     Active Substance: RITUXIMAB
     Dosage: 600 MG, UNK
     Route: 041
     Dates: start: 20160107, end: 20160107
  25. DOXORUBICIN HYDROCHLORIDE. [Concomitant]
     Active Substance: DOXORUBICIN HYDROCHLORIDE
     Dosage: 50 MG, UNK
     Route: 041
     Dates: start: 20151029, end: 20151029
  26. DOXORUBICIN HYDROCHLORIDE. [Concomitant]
     Active Substance: DOXORUBICIN HYDROCHLORIDE
     Dosage: 50 MG, UNK
     Route: 041
     Dates: start: 20151120, end: 20151120
  27. ONCOVIN [Concomitant]
     Active Substance: VINCRISTINE SULFATE
     Dosage: 1.4 MG, UNK
     Route: 041
     Dates: start: 20151029, end: 20151029
  28. SEISHOKU [Concomitant]
     Active Substance: SODIUM CHLORIDE
     Dosage: 100 ML, UNK
     Route: 041
     Dates: start: 20170526, end: 20170605
  29. G-LASTA [Suspect]
     Active Substance: PEGFILGRASTIM
     Indication: PRODUCT USED FOR UNKNOWN INDICATION
     Dosage: 3.6 MG, UNK
     Route: 058
     Dates: start: 20151215, end: 20151215
  30. G-LASTA [Suspect]
     Active Substance: PEGFILGRASTIM
     Dosage: 3.6 MG, UNK
     Route: 058
     Dates: start: 20160112, end: 20160112
  31. G-LASTA [Suspect]
     Active Substance: PEGFILGRASTIM
     Dosage: 3.6 MG, UNK
     Route: 058
     Dates: start: 20160223, end: 20160223
  32. G-LASTA [Suspect]
     Active Substance: PEGFILGRASTIM
     Dosage: 3.6 MG, 1X/MONTH
     Route: 058
     Dates: start: 20161025, end: 20161025
  33. RITUXAN [Concomitant]
     Active Substance: RITUXIMAB
     Dosage: 600 MG, UNK
     Route: 041
     Dates: start: 20151119, end: 20151119
  34. RITUXAN [Concomitant]
     Active Substance: RITUXIMAB
     Dosage: 600 MG, UNK
     Route: 041
     Dates: start: 20151210, end: 20151210
  35. ONCOVIN [Concomitant]
     Active Substance: VINCRISTINE SULFATE
     Dosage: 0.7 MG, UNK
     Route: 041
     Dates: start: 20160107, end: 20160107
  36. PREDONINE                          /00016203/ [Concomitant]
     Active Substance: PREDNISOLONE SODIUM SUCCINATE
     Dosage: 60 MG, UNK
     Route: 048
     Dates: start: 20160218, end: 20160218
  37. CEFAZOLIN NA [Concomitant]
     Active Substance: CEFAZOLIN SODIUM
     Dosage: 1 G, QD
     Route: 041
     Dates: start: 20170610, end: 20170610
  38. ENDOXAN                            /00021102/ [Concomitant]
     Active Substance: CYCLOPHOSPHAMIDE
     Dosage: 750 MG, UNK
     Route: 041
     Dates: start: 20151210, end: 20151210
  39. ENDOXAN                            /00021102/ [Concomitant]
     Active Substance: CYCLOPHOSPHAMIDE
     Dosage: 750 MG, UNK
     Route: 041
     Dates: start: 20160107, end: 20160107
  40. ONCOVIN [Concomitant]
     Active Substance: VINCRISTINE SULFATE
     Dosage: 1.4 MG, UNK
     Route: 041
     Dates: start: 20151210, end: 20151210
  41. ONCOVIN [Concomitant]
     Active Substance: VINCRISTINE SULFATE
     Dosage: 0.7 MG, UNK
     Route: 041
     Dates: start: 20160128, end: 20160128
  42. SEISHOKU [Concomitant]
     Active Substance: SODIUM CHLORIDE
     Dosage: 100 ML, TID
     Route: 041
     Dates: start: 20170606, end: 20170606
  43. RITUXAN [Concomitant]
     Active Substance: RITUXIMAB
     Dosage: 600 MG, UNK
     Route: 041
     Dates: start: 20151104, end: 20151104
  44. ENDOXAN                            /00021102/ [Concomitant]
     Active Substance: CYCLOPHOSPHAMIDE
     Dosage: 770 MG, UNK
     Route: 041
     Dates: start: 20151008, end: 20151008
  45. ENDOXAN                            /00021102/ [Concomitant]
     Active Substance: CYCLOPHOSPHAMIDE
     Dosage: 750 MG, UNK
     Route: 041
     Dates: start: 20151029, end: 20151029
  46. DOXORUBICIN HYDROCHLORIDE. [Concomitant]
     Active Substance: DOXORUBICIN HYDROCHLORIDE
     Dosage: 50 MG, UNK
     Route: 041
     Dates: start: 20151210, end: 20151210
  47. PREDONINE                          /00016203/ [Concomitant]
     Active Substance: PREDNISOLONE SODIUM SUCCINATE
     Dosage: 60 MG, UNK
     Route: 048
     Dates: start: 20151008, end: 20151012
  48. PREDONINE                          /00016203/ [Concomitant]
     Active Substance: PREDNISOLONE SODIUM SUCCINATE
     Dosage: 60 MG, UNK
     Route: 048
     Dates: start: 20151029, end: 20151102
  49. HUMULIN R [Concomitant]
     Active Substance: INSULIN HUMAN
     Dosage: 1 IU, QID
     Route: 058
     Dates: start: 20170525, end: 20170607
  50. CEFAZOLIN NA [Concomitant]
     Active Substance: CEFAZOLIN SODIUM
     Dosage: 1 G, QD
     Route: 041
     Dates: start: 20170607, end: 20170607
  51. SEISHOKU [Concomitant]
     Active Substance: SODIUM CHLORIDE
     Dosage: 100 ML, BID
     Route: 041
     Dates: start: 20170525, end: 20170525

REACTIONS (1)
  - Aortitis [Recovering/Resolving]

NARRATIVE: CASE EVENT DATE: 201705
